FAERS Safety Report 5748866-7 (Version None)
Quarter: 2008Q2

REPORT INFORMATION
  Report Type: 
  Country: None (occurrence: None)
  Receive Date: 20080522
  Receipt Date: 20080510
  Transmission Date: 20081010
  Serious: Yes (Death, Hospitalization)
  Sender: FDA-Public Use
  Company Number: 2008US000610

PATIENT
  Age: 62 Year
  Sex: Male
  Weight: 71.5 kg

DRUGS (3)
  1. PROGRAF [Suspect]
     Indication: LIVER TRANSPLANT
     Dosage: 0.5 MG, OTHER, ORAL
     Route: 048
     Dates: start: 20070104
  2. LOPRESSOR [Concomitant]
  3. OXYCODONE/APAP (OXYCODONE) [Concomitant]

REACTIONS (26)
  - ABSCESS [None]
  - ANASTOMOTIC LEAK [None]
  - ASCITES [None]
  - ASPARTATE AMINOTRANSFERASE INCREASED [None]
  - ATELECTASIS [None]
  - BACTERIA URINE IDENTIFIED [None]
  - BLADDER CANCER [None]
  - BLOOD ALBUMIN DECREASED [None]
  - BLOOD ALKALINE PHOSPHATASE DECREASED [None]
  - BLOOD POTASSIUM INCREASED [None]
  - BLOOD SODIUM DECREASED [None]
  - BLOOD UREA INCREASED [None]
  - ENTEROCOCCAL INFECTION [None]
  - HAEMATOCRIT DECREASED [None]
  - HAEMATOMA INFECTION [None]
  - ILEUS [None]
  - INTERNATIONAL NORMALISED RATIO INCREASED [None]
  - LUNG NEOPLASM [None]
  - LYMPHADENOPATHY MEDIASTINAL [None]
  - LYMPHATIC OBSTRUCTION [None]
  - METASTASIS [None]
  - PLEURAL EFFUSION [None]
  - PYREXIA [None]
  - SMALL INTESTINAL OBSTRUCTION [None]
  - VENOUS OCCLUSION [None]
  - WHITE BLOOD CELL COUNT INCREASED [None]
